FAERS Safety Report 25831014 (Version 1)
Quarter: 2025Q3

REPORT INFORMATION
  Report Type: Spontaneous
  Country: US (occurrence: US)
  Receive Date: 20250922
  Receipt Date: 20250922
  Transmission Date: 20251020
  Serious: Yes (Other)
  Sender: MYLAN
  Company Number: US-MYLANLABS-2025M1079042

PATIENT
  Age: 40 Year
  Sex: Male

DRUGS (16)
  1. FENTANYL [Suspect]
     Active Substance: FENTANYL
     Indication: Product used for unknown indication
  2. FENTANYL [Suspect]
     Active Substance: FENTANYL
     Route: 065
  3. FENTANYL [Suspect]
     Active Substance: FENTANYL
     Route: 065
  4. FENTANYL [Suspect]
     Active Substance: FENTANYL
  5. MORPHINE [Suspect]
     Active Substance: MORPHINE
     Indication: Product used for unknown indication
  6. MORPHINE [Suspect]
     Active Substance: MORPHINE
     Route: 065
  7. MORPHINE [Suspect]
     Active Substance: MORPHINE
     Route: 065
  8. MORPHINE [Suspect]
     Active Substance: MORPHINE
  9. ALPRAZOLAM [Suspect]
     Active Substance: ALPRAZOLAM
     Indication: Product used for unknown indication
  10. ALPRAZOLAM [Suspect]
     Active Substance: ALPRAZOLAM
     Route: 065
  11. ALPRAZOLAM [Suspect]
     Active Substance: ALPRAZOLAM
     Route: 065
  12. ALPRAZOLAM [Suspect]
     Active Substance: ALPRAZOLAM
  13. METHADONE [Suspect]
     Active Substance: METHADONE HYDROCHLORIDE
     Indication: Drug use disorder
  14. METHADONE [Suspect]
     Active Substance: METHADONE HYDROCHLORIDE
     Route: 065
  15. METHADONE [Suspect]
     Active Substance: METHADONE HYDROCHLORIDE
     Route: 065
  16. METHADONE [Suspect]
     Active Substance: METHADONE HYDROCHLORIDE

REACTIONS (5)
  - Drug abuse [Unknown]
  - Gait disturbance [Unknown]
  - Aggression [Unknown]
  - Agitation [Unknown]
  - Somnolence [Unknown]

NARRATIVE: CASE EVENT DATE: 20240201
